FAERS Safety Report 8568002-1 (Version None)
Quarter: 2012Q3

REPORT INFORMATION
  Report Type: 
  Country: None (occurrence: None)
  Receive Date: 20120803
  Receipt Date: 20111212
  Transmission Date: 20120928
  Serious: No
  Sender: FDA-Public Use
  Company Number: US-ABBOTT-11P-163-0882866-00

PATIENT
  Sex: Female

DRUGS (8)
  1. SIMVASTATIN [Concomitant]
     Indication: BLOOD CHOLESTEROL INCREASED
  2. NIASPAN [Suspect]
     Indication: BLOOD TRIGLYCERIDES
     Route: 048
     Dates: start: 20110601
  3. RALOXIFENE HYDROCHLORIDE [Concomitant]
     Indication: OSTEOPOROSIS
  4. AMLODIPINE [Concomitant]
     Indication: BLOOD PRESSURE
  5. PROTONIX [Concomitant]
     Indication: GASTROOESOPHAGEAL REFLUX DISEASE
  6. ALLOPURINOL [Concomitant]
     Indication: GOUT
  7. FERROUS SULFATE TAB [Concomitant]
     Indication: BLOOD IRON
  8. LOVAZA [Concomitant]
     Indication: BLOOD CHOLESTEROL

REACTIONS (2)
  - FLUSHING [None]
  - PARAESTHESIA [None]
